FAERS Safety Report 4795795-1 (Version None)
Quarter: 2005Q3

REPORT INFORMATION
  Report Type: 
  Country: None (occurrence: None)
  Receive Date: 20050916
  Receipt Date: 20040728
  Transmission Date: 20060218
  Serious: Yes (Other)
  Sender: FDA-Public Use
  Company Number: US-JNJFOC-20040605109

PATIENT
  Age: 10 Year
  Sex: Female
  Weight: 39.9165 kg

DRUGS (1)
  1. TOPAMAX [Suspect]
     Indication: CONVULSION
     Dosage: 150 MG, 2 IN 1 DAY, ORAL
     Route: 048
     Dates: start: 20030701

REACTIONS (2)
  - ANHIDROSIS [None]
  - HYPERTHERMIA [None]
